FAERS Safety Report 4506086-8 (Version None)
Quarter: 2004Q4

REPORT INFORMATION
  Report Type: 
  Country: None (occurrence: None)
  Receive Date: 20041025
  Receipt Date: 20040507
  Transmission Date: 20050328
  Serious: Yes (Other)
  Sender: FDA-Public Use
  Company Number: US-JNJFOC-20040501379

PATIENT
  Age: 59 Year
  Sex: Male

DRUGS (17)
  1. INFLIXIMAB (INFLIXIMAB, RECOMBINANT) LYOPHILIZED POWDER [Suspect]
     Indication: RHEUMATOID ARTHRITIS
     Dosage: INTRAVENOUS
     Route: 042
     Dates: start: 20001215
  2. PREDNISONE [Concomitant]
  3. TOPROL (METOPROLOL SUCCINATE) TABLETS [Concomitant]
  4. DIGOXIN [Concomitant]
  5. POTASSIUM (POTASSIUM) [Concomitant]
  6. KLOR-CON [Concomitant]
  7. LIPITOR [Concomitant]
  8. AMARYL [Concomitant]
  9. COUMADIN [Concomitant]
  10. PREVACID (PREVACID) [Concomitant]
  11. FOLIC ACID [Concomitant]
  12. ZAROXOYN (METOLAZONE) [Concomitant]
  13. ASPIRIN [Concomitant]
  14. ZYRTEC [Concomitant]
  15. COMBIVENT [Concomitant]
  16. ADVIL (IBUPROFEN) TABLETS [Concomitant]
  17. NITRO TABS (GLCYERIL TRINITRATE) TABLETS [Concomitant]

REACTIONS (1)
  - ORAL CANDIDIASIS [None]
